FAERS Safety Report 5261464-7 (Version None)
Quarter: 2007Q1

REPORT INFORMATION
  Report Type: 
  Country: None (occurrence: None)
  Receive Date: 20070307
  Receipt Date: 20070219
  Transmission Date: 20070707
  Serious: Yes (Hospitalization)
  Sender: FDA-Public Use
  Company Number: 2007BL000535

PATIENT
  Age: 76 Year
  Sex: Female

DRUGS (9)
  1. FLOXAL AUGENTROPEN (OFLOXACIN) [Suspect]
     Indication: ENTEROBACTER INFECTION
     Dosage: SEE IMAGE
     Route: 047
     Dates: start: 20020924, end: 20021112
  2. FLOXAL AUGENTROPEN (OFLOXACIN) [Suspect]
     Indication: ENTEROBACTER INFECTION
     Dosage: SEE IMAGE
     Route: 047
     Dates: start: 20021113, end: 20021124
  3. BROMFENAC SODIUM (BROMFENAC SODIUM) [Suspect]
     Indication: ULCERATIVE KERATITIS
     Dosage: 1 APPLICATION; 4 TIMES A DAY; RIGHT EYE
     Route: 047
     Dates: start: 20021125, end: 20021129
  4. LEVOFLOXACIN [Suspect]
     Indication: ENTEROBACTER INFECTION
     Dosage: 1 APPLICATION; EVERY 2 HOURS; RIGHT EYE
     Route: 047
     Dates: start: 20021125
  5. ERYTHROMYCIN [Suspect]
     Indication: ENTEROBACTER INFECTION
     Dosage: 1 APPLICATION; EVERY 2 HOURS; RIGHT EYE
     Route: 047
     Dates: start: 20021125
  6. ATROPINE [Suspect]
     Indication: ULCERATIVE KERATITIS
     Dosage: TWICE A DAY; RIGHT EYE
     Route: 047
     Dates: start: 20021125
  7. TOSUFLOXACIN [Concomitant]
  8. MOFEZOLAC [Concomitant]
  9. FOSFOMYCIN [Concomitant]

REACTIONS (7)
  - CATARACT [None]
  - CHOROIDAL DETACHMENT [None]
  - CORNEAL PERFORATION [None]
  - ENTEROBACTER INFECTION [None]
  - FLAT ANTERIOR CHAMBER OF EYE [None]
  - IRIDOCELE [None]
  - ULCERATIVE KERATITIS [None]
